FAERS Safety Report 12460490 (Version 1)
Quarter: 2016Q2

REPORT INFORMATION
  Report Type: Spontaneous
  Country: US (occurrence: US)
  Receive Date: 20160613
  Receipt Date: 20160613
  Transmission Date: 20160815
  Serious: Yes (Other)
  Sender: FDA-Public Use
  Company Number: US-SANKYOGER-DSU-2013-02630

PATIENT

DRUGS (6)
  1. ATENOLOL. [Concomitant]
     Active Substance: ATENOLOL
     Indication: CARDIOVASCULAR EVENT PROPHYLAXIS
     Dosage: UNKNOWN     EVERY
     Route: 048
     Dates: end: 2012
  2. BENICAR [Suspect]
     Active Substance: OLMESARTAN MEDOXOMIL
     Indication: CARDIOVASCULAR EVENT PROPHYLAXIS
     Dosage: UNK
     Dates: start: 200608
  3. UNSPECIFIED MEDICATION (INGREDIENTS UNKNOWN) [Suspect]
     Active Substance: UNSPECIFIED INGREDIENT
     Indication: CARDIOVASCULAR EVENT PROPHYLAXIS
     Dosage: UNKNOWN     EVERY
     Dates: end: 2012
  4. ATENOLOL. [Concomitant]
     Active Substance: ATENOLOL
     Indication: HYPERTENSION
     Dosage: UNKNOWN     EVERY
     Route: 048
     Dates: start: 2012
  5. BENICAR [Suspect]
     Active Substance: OLMESARTAN MEDOXOMIL
     Indication: HYPERTENSION
     Dosage: 20 MG, QD
     Route: 048
     Dates: start: 2007
  6. UNSPECIFIED MEDICATION (INGREDIENTS UNKNOWN) [Suspect]
     Active Substance: UNSPECIFIED INGREDIENT
     Indication: HYPERTENSION

REACTIONS (12)
  - Cyst [Recovered/Resolved]
  - Cartilage injury [Not Recovered/Not Resolved]
  - Cataract [Not Recovered/Not Resolved]
  - Joint swelling [Not Recovered/Not Resolved]
  - Diarrhoea [Unknown]
  - Fall [Recovered/Resolved]
  - Vomiting [Unknown]
  - Alopecia [Not Recovered/Not Resolved]
  - Nausea [Unknown]
  - Cerebrovascular accident [Recovered/Resolved]
  - Swelling [Not Recovered/Not Resolved]
  - Abdominal pain [Unknown]

NARRATIVE: CASE EVENT DATE: 2009
